FAERS Safety Report 8496900-6 (Version None)
Quarter: 2012Q3

REPORT INFORMATION
  Report Type: 
  Country: None (occurrence: None)
  Receive Date: 20120709
  Receipt Date: 20120628
  Transmission Date: 20120928
  Serious: Yes (Other)
  Sender: FDA-Public Use
  Company Number: GB-ELI_LILLY_AND_COMPANY-GB201206009145

PATIENT
  Age: 60 Year
  Sex: Female
  Weight: 72 kg

DRUGS (4)
  1. FORTEO [Suspect]
     Indication: OSTEOPOROSIS
     Dosage: 20 UG, QD
     Route: 058
     Dates: start: 20110701, end: 20120201
  2. ROSUVASTATIN [Concomitant]
     Indication: HYPERCHOLESTEROLAEMIA
     Dosage: 5 MG, UNK
     Route: 048
     Dates: start: 20090101
  3. ASPIRIN [Concomitant]
     Indication: CARDIOVASCULAR EVENT PROPHYLAXIS
     Dosage: 75 MG, UNKNOWN
     Route: 048
     Dates: start: 20090101
  4. CALCICHEW D3 [Concomitant]
     Indication: OSTEOPOROSIS
     Dosage: 1 DF, OTHER
     Route: 048
     Dates: start: 20070101

REACTIONS (9)
  - ATRIAL TACHYCARDIA [None]
  - TREMOR [None]
  - FALL [None]
  - HYPOTENSION [None]
  - MALAISE [None]
  - SYNCOPE [None]
  - CHEST DISCOMFORT [None]
  - PALPITATIONS [None]
  - TOOTH INJURY [None]
